FAERS Safety Report 8052320-X (Version None)
Quarter: 2012Q1

REPORT INFORMATION
  Report Type: 
  Country: None (occurrence: None)
  Receive Date: 20120118
  Receipt Date: 20120109
  Transmission Date: 20120608
  Serious: Yes (Hospitalization)
  Sender: FDA-Public Use
  Company Number: US-BAYER-2010-001156

PATIENT
  Age: 36 Year
  Sex: Female
  Weight: 136.5 kg

DRUGS (6)
  1. NAPROXEN [Concomitant]
     Indication: INFLAMMATION
     Route: 048
  2. TRAMADOL HCL [Concomitant]
     Indication: BACK PAIN
     Dosage: UNK
     Route: 048
     Dates: start: 20050101
  3. FLONASE [Concomitant]
     Indication: SINUSITIS
     Route: 055
  4. YASMIN [Suspect]
     Dosage: UNK
     Dates: start: 20030101
  5. NORFLEX [Concomitant]
     Indication: PAIN
     Route: 048
  6. PROTONIX [Concomitant]
     Indication: GASTROOESOPHAGEAL REFLUX DISEASE
     Route: 048

REACTIONS (1)
  - GALLBLADDER INJURY [None]
